FAERS Safety Report 8076641-X (Version None)
Quarter: 2012Q1

REPORT INFORMATION
  Report Type: 
  Country: None (occurrence: None)
  Receive Date: 20120127
  Receipt Date: 20120124
  Transmission Date: 20120608
  Serious: Yes (Death, Other)
  Sender: FDA-Public Use
  Company Number: PHHY2011JP104441

PATIENT
  Sex: Female

DRUGS (11)
  1. RIFAMPICIN [Suspect]
     Dosage: 300 MG, QD
     Route: 048
     Dates: start: 20111125, end: 20111125
  2. ASTOMIN [Concomitant]
     Route: 048
  3. PIPERACILLIN SODIUM [Concomitant]
     Indication: PNEUMONIA
     Dosage: 4 G, DAILY
     Dates: start: 20111104, end: 20111109
  4. RIFAMPICIN [Suspect]
     Indication: ATYPICAL MYCOBACTERIAL INFECTION
     Dosage: 300 MG, QD
     Route: 048
     Dates: start: 20111116, end: 20111117
  5. CLARITHROMYCIN [Suspect]
     Indication: ATYPICAL MYCOBACTERIAL INFECTION
     Dosage: 400 MG, DAILY
     Route: 048
     Dates: start: 20111114, end: 20111117
  6. NORVASC [Concomitant]
     Indication: ESSENTIAL HYPERTENSION
     Dosage: 5 MG, DAILY
     Route: 048
     Dates: end: 20111125
  7. FOSMICIN [Concomitant]
     Indication: DIARRHOEA
     Dosage: 1200 MG, DAILY
     Dates: start: 20111118, end: 20111121
  8. CLEANAL [Concomitant]
     Route: 048
  9. CLARITHROMYCIN [Suspect]
     Dosage: 400 MG, DAILY
     Route: 048
     Dates: start: 20111122, end: 20111125
  10. MUCOSOLVAN [Concomitant]
     Route: 048
  11. LEVOFLOXACIN [Concomitant]
     Indication: PNEUMONIA
     Dosage: 500 MG, DAILY
     Route: 048
     Dates: start: 20111104, end: 20111111

REACTIONS (18)
  - ACUTE HEPATIC FAILURE [None]
  - CARDIAC ARREST [None]
  - CYANOSIS [None]
  - DYSPNOEA [None]
  - CHROMATURIA [None]
  - HAEMOLYTIC ANAEMIA [None]
  - MALAISE [None]
  - METABOLIC ACIDOSIS [None]
  - LACTIC ACIDOSIS [None]
  - BILIRUBINURIA [None]
  - FEELING COLD [None]
  - JAUNDICE [None]
  - PYREXIA [None]
  - NAUSEA [None]
  - ERYTHEMA [None]
  - HEPATITIS FULMINANT [None]
  - VOMITING [None]
  - DIARRHOEA [None]
